FAERS Safety Report 18577137 (Version 4)
Quarter: 2021Q1

REPORT INFORMATION
  Report Type: Report from Study
  Country: US (occurrence: US)
  Receive Date: 20201203
  Receipt Date: 20210329
  Transmission Date: 20210419
  Serious: Yes (Hospitalization, Other)
  Sender: FDA-Public Use
  Company Number: US-SEATTLE GENETICS-2020SGN02933

PATIENT
  Age: 54 Year
  Sex: Female

DRUGS (22)
  1. HERCEPTIN [Concomitant]
     Active Substance: TRASTUZUMAB
     Dosage: 6MG/KG
     Route: 042
     Dates: start: 20200514, end: 20201030
  2. AMLODIPINE [Concomitant]
     Active Substance: AMLODIPINE BESYLATE
     Dosage: 5 MG, QD
     Route: 048
  3. LIVALO [Concomitant]
     Active Substance: PITAVASTATIN CALCIUM
     Dosage: 2 MG, QHS X 30 DAYS
     Route: 048
  4. ATIVAN [Concomitant]
     Active Substance: LORAZEPAM
     Dosage: 2 MG, BID
     Route: 048
  5. NUVIGIL [Concomitant]
     Active Substance: ARMODAFINIL
     Dosage: 200 MG, QD X 30 DAYS
     Route: 048
  6. CURCUMIN [Concomitant]
     Active Substance: CURCUMIN
  7. TUCATINIB [Suspect]
     Active Substance: TUCATINIB
     Dosage: 150 MG, BID
     Route: 048
  8. ASPIRIN 81 [Concomitant]
     Active Substance: ASPIRIN
     Dosage: 81 MG, QD
     Route: 048
  9. CAL/MAG PLUS [Concomitant]
     Indication: SUPPLEMENTATION THERAPY
     Dosage: 1 DF, BID
     Route: 048
  10. TUCATINIB [Suspect]
     Active Substance: TUCATINIB
     Indication: BREAST CANCER METASTATIC
     Dosage: 150 MG, BID
     Route: 048
     Dates: start: 20200514
  11. AMBIEN [Concomitant]
     Active Substance: ZOLPIDEM TARTRATE
     Dosage: 10 MG, QHS
     Route: 048
  12. OMEGA?3 FATTY ACIDS [Concomitant]
     Active Substance: OMEGA-3 FATTY ACIDS
     Dosage: 2 DF, QD X 30 DAYS
     Route: 048
  13. DICLOFENAC [Concomitant]
     Active Substance: DICLOFENAC
     Dosage: 1% GEL TO AFFECTED AREAS, TID
     Route: 061
  14. FLUOXETINE [Concomitant]
     Active Substance: FLUOXETINE HYDROCHLORIDE
     Dosage: 40 MG, QD
     Route: 048
  15. MS CONTIN [Concomitant]
     Active Substance: MORPHINE SULFATE
     Dosage: 30 MG, TID X 30 DAYS
     Route: 048
  16. ONDANSETRON [Concomitant]
     Active Substance: ONDANSETRON
     Indication: NAUSEA
     Dosage: 8 MG, TID, PRN X 15 DAYS
  17. OXYCODONE [Concomitant]
     Active Substance: OXYCODONE
     Indication: BREAKTHROUGH PAIN
     Dosage: 10 MG, Q6HR X 30 DAYS
     Route: 048
  18. XELODA [Concomitant]
     Active Substance: CAPECITABINE
     Dosage: 500 MG (2 TABLETS), BID
     Dates: start: 20200514, end: 20201030
  19. CHOLECALCIFEROL [Concomitant]
     Active Substance: CHOLECALCIFEROL
     Dosage: 5000 IU, QD
     Route: 048
  20. COENZYME Q10 [Concomitant]
     Active Substance: DIETARY SUPPLEMENT\UBIDECARENONE
     Indication: SUPPLEMENTATION THERAPY
     Dosage: 100 MG, BID X 30 DAYS
     Route: 048
  21. IMODIUM [Concomitant]
     Active Substance: LOPERAMIDE HYDROCHLORIDE
  22. PROAIR HFA [Concomitant]
     Active Substance: ALBUTEROL SULFATE
     Dosage: 2 PUFFS, Q4?6HR X 30 DAYS

REACTIONS (16)
  - Emotional distress [Recovered/Resolved]
  - COVID-19 pneumonia [Recovered/Resolved]
  - Depression [Unknown]
  - Asthma exercise induced [Recovered/Resolved]
  - Fall [Unknown]
  - Cerebral infarction [Recovered/Resolved]
  - Memory impairment [Unknown]
  - Dysphonia [Recovered/Resolved]
  - Pain [Unknown]
  - Renal failure [Unknown]
  - Somnolence [Recovered/Resolved]
  - Dyspnoea exertional [Unknown]
  - Rectal haemorrhage [Unknown]
  - Rhinitis allergic [Unknown]
  - Fatigue [Unknown]
  - Nausea [Unknown]

NARRATIVE: CASE EVENT DATE: 20201109
